FAERS Safety Report 14600155 (Version 1)
Quarter: 2018Q1

REPORT INFORMATION
  Report Type: Spontaneous
  Country: CZ (occurrence: CZ)
  Receive Date: 20180305
  Receipt Date: 20180305
  Transmission Date: 20180509
  Serious: Yes (Death, Life-Threatening, Hospitalization, Other)
  Sender: FDA-Public Use
  Company Number: CZ-GLAXOSMITHKLINE-CZ2015GSK102211

PATIENT
  Age: 59 Year
  Sex: Male

DRUGS (12)
  1. METHYLPREDNISOLONE. [Suspect]
     Active Substance: METHYLPREDNISOLONE
     Indication: CHRONIC OBSTRUCTIVE PULMONARY DISEASE
     Dosage: UNK, 16 TO 20 MG QD
     Dates: start: 2006
  2. CIPROFLOXACIN. [Suspect]
     Active Substance: CIPROFLOXACIN
     Indication: ANTIBIOTIC THERAPY
     Dosage: UNK
     Route: 065
  3. KETOCONAZOLE. [Suspect]
     Active Substance: KETOCONAZOLE
     Indication: ANTIBIOTIC THERAPY
  4. OMEPRAZOLE. [Suspect]
     Active Substance: OMEPRAZOLE
     Indication: DUODENAL ULCER
     Dosage: UNK
     Route: 065
  5. PENICILLINE [Suspect]
     Active Substance: PENICILLIN
     Indication: ANTI-INFECTIVE THERAPY
     Dosage: UNK
     Route: 065
  6. METRONIDAZOLE. [Suspect]
     Active Substance: METRONIDAZOLE
  7. PRIMIDONE. [Suspect]
     Active Substance: PRIMIDONE
     Indication: EPILEPSY
     Dosage: UNK
     Route: 065
  8. FLUCONAZOLE. [Suspect]
     Active Substance: FLUCONAZOLE
     Indication: ANTI-INFECTIVE THERAPY
     Dosage: LATER THE DOSAGE WAS INCREASED TO 800 MG I.V./DAY
     Route: 065
  9. CLARITHROMYCIN. [Suspect]
     Active Substance: CLARITHROMYCIN
     Indication: ANTIBIOTIC THERAPY
     Dosage: UNK
     Route: 065
  10. PHENYTOIN. [Suspect]
     Active Substance: PHENYTOIN
     Indication: EPILEPSY
     Dosage: UNK
     Route: 065
  11. ACICLOVIR [Suspect]
     Active Substance: ACYCLOVIR
     Indication: ANTI-INFECTIVE THERAPY
     Dosage: UNK
     Route: 065
  12. KETOCONAZOLE. [Suspect]
     Active Substance: KETOCONAZOLE
     Indication: CANDIDA INFECTION
     Dosage: 400 MG, QD
     Route: 048
     Dates: start: 200705, end: 20070530

REACTIONS (32)
  - Cryptococcosis [Fatal]
  - Polyarteritis nodosa [Fatal]
  - Pulmonary haemorrhage [Fatal]
  - Renal failure [Fatal]
  - Weight decreased [Not Recovered/Not Resolved]
  - Septic shock [Fatal]
  - Peritonitis [Fatal]
  - Clostridium test positive [Fatal]
  - Decreased appetite [Unknown]
  - Loss of consciousness [Unknown]
  - C-reactive protein increased [Unknown]
  - Generalised tonic-clonic seizure [Unknown]
  - Nosocomial infection [Unknown]
  - Psychomotor retardation [Not Recovered/Not Resolved]
  - Condition aggravated [Not Recovered/Not Resolved]
  - Psychomotor skills impaired [Unknown]
  - Meningism [Unknown]
  - Encephalitis [Fatal]
  - Pleocytosis [Fatal]
  - Pneumothorax [Fatal]
  - Leukopenia [Unknown]
  - Coagulopathy [Unknown]
  - Pseudomonas infection [Fatal]
  - Acute respiratory distress syndrome [Fatal]
  - Herpes virus infection [Fatal]
  - Colitis [Fatal]
  - Drug interaction [Fatal]
  - Pyrexia [Unknown]
  - Multiple organ dysfunction syndrome [Fatal]
  - Meningitis aseptic [Fatal]
  - Nosocomial infection [Fatal]
  - Anaemia [Unknown]

NARRATIVE: CASE EVENT DATE: 2007
